FAERS Safety Report 12900464 (Version 1)
Quarter: 2016Q4

REPORT INFORMATION
  Report Type: Spontaneous
  Country: US (occurrence: US)
  Receive Date: 20161031
  Receipt Date: 20161031
  Transmission Date: 20170207
  Serious: Yes (Life-Threatening)
  Sender: FDA-Public Use
  Company Number: None

PATIENT
  Age: 58 Year
  Sex: Female
  Weight: 85.2 kg

DRUGS (1)
  1. NITROGLYCERIN. [Suspect]
     Active Substance: NITROGLYCERIN
     Indication: CARDIAC OPERATION
     Route: 060
     Dates: start: 20161027, end: 20161027

REACTIONS (6)
  - Palpitations [None]
  - Heart rate decreased [None]
  - Myocardial infarction [None]
  - Dizziness [None]
  - Respiratory depression [None]
  - Blood pressure decreased [None]

NARRATIVE: CASE EVENT DATE: 20161027
